FAERS Safety Report 22145866 (Version 1)
Quarter: 2023Q1

REPORT INFORMATION
  Report Type: Spontaneous
  Country: GB (occurrence: GB)
  Receive Date: 20230328
  Receipt Date: 20230328
  Transmission Date: 20230418
  Serious: Yes (Other)
  Sender: FDA-Public Use
  Company Number: GB-GLENMARK PHARMACEUTICALS-2022GMK072745

PATIENT

DRUGS (1)
  1. MOMETASONE FUROATE [Suspect]
     Active Substance: MOMETASONE FUROATE
     Indication: Product used for unknown indication
     Dosage: UNK, OD (THE OINTMENT WAS USED AS PRESCRIBED, NO MORE THAN ONCE PER DAY)
     Route: 065
     Dates: start: 20220315

REACTIONS (3)
  - Circumstance or information capable of leading to medication error [Unknown]
  - Environmental exposure [Unknown]
  - Product container issue [Unknown]

NARRATIVE: CASE EVENT DATE: 20220516
